FAERS Safety Report 8373332 (Version 2)
Quarter: 2013Q1

REPORT INFORMATION
  Report Type: Report from Study
  Country: US (occurrence: US)
  Receive Date: 20120128
  Receipt Date: 20130131
  Transmission Date: 20140127
  Serious: No
  Sender: FDA-Public Use
  Company Number: US-ABBOTT-11P-163-0844212-00

PATIENT
  Age: 64 Year
  Sex: Female

DRUGS (7)
  1. HUMIRA [Suspect]
     Indication: PSORIATIC ARTHROPATHY
     Dates: start: 200707, end: 201203
  2. MAGNESIUM [Suspect]
     Dosage: DAILY
     Route: 048
  3. VITAMIN B12 [Concomitant]
     Dosage: DAILY
     Route: 048
  4. VITAMIN B COMPLEX [Concomitant]
  5. MULTIVITAMIN [Concomitant]
  6. CALCIUM SUPPLEMENT [Concomitant]
  7. CITALOPRAM [Concomitant]
     Indication: DEPRESSION
     Dosage: DAILY

REACTIONS (6)
  - Hypertension [Recovering/Resolving]
  - Respiratory tract infection [Recovering/Resolving]
  - Type 2 diabetes mellitus [Recovering/Resolving]
  - Pneumonia [Recovering/Resolving]
  - Respiratory tract infection [Recovering/Resolving]
  - Respiratory tract infection [Recovering/Resolving]
